FAERS Safety Report 12308123 (Version 1)
Quarter: 2016Q2

REPORT INFORMATION
  Report Type: Spontaneous
  Country: US (occurrence: US)
  Receive Date: 20160426
  Receipt Date: 20160426
  Transmission Date: 20160815
  Serious: Yes (Death)
  Sender: FDA-Public Use
  Company Number: US-LUNDBECK-DKLU2012853

PATIENT
  Age: 8 Year
  Sex: Female

DRUGS (1)
  1. SABRIL [Suspect]
     Active Substance: VIGABATRIN
     Indication: PITUITARY TUMOUR
     Route: 048
     Dates: start: 20151009

REACTIONS (1)
  - Death [Fatal]

NARRATIVE: CASE EVENT DATE: 20160203
